FAERS Safety Report 8569222-2 (Version None)
Quarter: 2012Q3

REPORT INFORMATION
  Report Type: 
  Country: None (occurrence: None)
  Receive Date: 20120803
  Receipt Date: 20120426
  Transmission Date: 20120928
  Serious: No
  Sender: FDA-Public Use
  Company Number: US-ABBOTT-12P-163-0929578-00

PATIENT
  Sex: Male
  Weight: 118.04 kg

DRUGS (5)
  1. NIASPAN [Suspect]
     Indication: BLOOD TRIGLYCERIDES INCREASED
     Dosage: 3 TABS
  2. NIASPAN [Suspect]
     Dosage: 2 TABS OF ONE WEEK
  3. NIASPAN [Suspect]
     Dosage: ONE TAB FOR ONE WEEK
  4. TESTOSTERONE [Concomitant]
     Dosage: EVERY 10 DAYS
  5. ALKA SELTZER [Concomitant]
     Indication: PRODUCT USED FOR UNKNOWN INDICATION

REACTIONS (4)
  - FLUSHING [None]
  - UNEVALUABLE EVENT [None]
  - PARAESTHESIA [None]
  - FEELING HOT [None]
